FAERS Safety Report 7306145-0 (Version None)
Quarter: 2011Q1

REPORT INFORMATION
  Report Type: 
  Country: None (occurrence: None)
  Receive Date: 20110210
  Receipt Date: 20110129
  Transmission Date: 20110831
  Serious: Yes (Death, Hospitalization)
  Sender: FDA-Public Use
  Company Number: TPH-00322

PATIENT
  Age: 19 Year
  Sex: Female

DRUGS (2)
  1. BIOTONICO [Concomitant]
  2. TRIQUILAR (ETHINYLESTRADIOL + LEVONORGESTREL) COATED TABLET (LOT # BS0 [Suspect]
     Indication: CONTRACEPTION
     Dosage: ORAL
     Route: 048

REACTIONS (4)
  - DIZZINESS [None]
  - HEADACHE [None]
  - RETCHING [None]
  - ASTHENIA [None]
